FAERS Safety Report 9158182 (Version 2)
Quarter: 2013Q2

REPORT INFORMATION
  Report Type: Spontaneous
  Country: JP (occurrence: None)
  Receive Date: 20130131
  Receipt Date: 20130520
  Transmission Date: 20140414
  Serious: Yes (Hospitalization)
  Sender: FDA-Public Use
  Company Number: TCI2013A00610

PATIENT
  Age: 48 Year
  Sex: Female

DRUGS (11)
  1. ROZEREM [Suspect]
     Indication: INSOMNIA
     Dosage: BEFORE BEDTIME
     Route: 048
     Dates: start: 20130124, end: 20130128
  2. LEVOTOMIN [Suspect]
     Dosage: BEFORE BEDTIME
     Route: 048
     Dates: start: 20130124, end: 20130128
  3. EURODIN (ESTAZOLAM) [Concomitant]
  4. ROHYPNOL (FLUNITRAZEPAM) [Concomitant]
  5. SENIRAM (BROMAZEPAM) [Concomitant]
  6. SERENAL (OXAZOLAM) [Concomitant]
  7. POLARAMINE (DEXCHLORPHENIRAMINE MALEATE) [Concomitant]
  8. SENNOSIDE (SENNOSIDE A+B CALCIUM) [Concomitant]
  9. CARBOCISTEIN TAIYO (CARBOCISTEINE) [Concomitant]
  10. POTASSIUM CHLORIDE [Concomitant]
  11. PACETCOOL (CEFOTIAM HYDROCHLORIDE) [Concomitant]

REACTIONS (1)
  - Rhabdomyolysis [None]
